FAERS Safety Report 22793449 (Version 3)
Quarter: 2024Q3

REPORT INFORMATION
  Report Type: Spontaneous
  Country: US (occurrence: US)
  Receive Date: 20230807
  Receipt Date: 20240830
  Transmission Date: 20241017
  Serious: No
  Sender: PFIZER
  Company Number: US-PFIZER INC-PV202300112529

PATIENT
  Age: 64 Year
  Sex: Female
  Weight: 108.84 kg

DRUGS (7)
  1. IBRANCE [Suspect]
     Active Substance: PALBOCICLIB
     Indication: Breast cancer female
     Dosage: MAX DOSAGE 1/DAY
     Dates: start: 2022
  2. IBRANCE [Suspect]
     Active Substance: PALBOCICLIB
     Indication: Breast cancer metastatic
     Dosage: 100 MG, 1X/DAY
     Route: 048
     Dates: start: 2022
  3. IBRANCE [Suspect]
     Active Substance: PALBOCICLIB
     Dosage: TAKE 1 TABLET (100 MG TOTAL) ONE TIME EACH DAY X 21 DAYS THEN OFF X 7 DAYS, REPEAT CYCLE
     Route: 048
  4. IBRANCE [Suspect]
     Active Substance: PALBOCICLIB
     Dosage: 125 MG
     Dates: start: 202405, end: 20240608
  5. XGEVA [Concomitant]
     Active Substance: DENOSUMAB
     Indication: Bone disorder
     Dosage: UNK
     Dates: start: 202206
  6. XGEVA [Concomitant]
     Active Substance: DENOSUMAB
     Dosage: 1 INJECTION ONCE A MONTH, DECREASED TO ONCE EVERY 12 WEEKS
  7. FULVESTRANT [Concomitant]
     Active Substance: FULVESTRANT
     Indication: Hormone suppression therapy
     Dosage: INJECTION, 2 SHOTS A MONTH IN THE HIP
     Dates: start: 202211, end: 202407

REACTIONS (6)
  - Epistaxis [Recovered/Resolved]
  - Alopecia [Recovering/Resolving]
  - White blood cell count decreased [Recovering/Resolving]
  - Red blood cell count decreased [Recovering/Resolving]
  - Asthenia [Recovering/Resolving]
  - Neoplasm progression [Unknown]

NARRATIVE: CASE EVENT DATE: 20220601
